FAERS Safety Report 14410293 (Version 1)
Quarter: 2018Q1

REPORT INFORMATION
  Report Type: Spontaneous
  Country: US (occurrence: US)
  Receive Date: 20180116
  Receipt Date: 20180116
  Transmission Date: 20180509
  Serious: No
  Sender: FDA-Public Use
  Company Number: None

PATIENT
  Sex: Female
  Weight: 94.35 kg

DRUGS (2)
  1. SODIUM CHLORIDE 0.9% [Suspect]
     Active Substance: SODIUM CHLORIDE
     Dosage: UUD W/BENLYSTA MONTHLY IVE
     Route: 042
     Dates: start: 201711
  2. BENLYSTA [Suspect]
     Active Substance: BELIMUMAB
     Indication: SYSTEMIC LUPUS ERYTHEMATOSUS
     Route: 042
     Dates: start: 201711

REACTIONS (4)
  - Drug ineffective [None]
  - Pruritus [None]
  - Nausea [None]
  - Erythema [None]
